FAERS Safety Report 11640759 (Version 1)
Quarter: 2015Q4

REPORT INFORMATION
  Report Type: Spontaneous
  Country: DE (occurrence: DE)
  Receive Date: 20151019
  Receipt Date: 20151019
  Transmission Date: 20160304
  Serious: Yes (Life-Threatening, Hospitalization)
  Sender: FDA-Public Use
  Company Number: DE-MYLANLABS-2015M1035011

PATIENT

DRUGS (4)
  1. ZOSTEX [Interacting]
     Active Substance: BRIVUDINE
     Indication: ORAL HERPES
     Route: 048
  2. CAPECITABINE. [Suspect]
     Active Substance: CAPECITABINE
     Indication: GASTRIC CANCER
     Dosage: 500 MG, 3-0-3 ON DAYS 1-21 OF THE CYCLE
     Route: 065
  3. EPIRUBICIN [Concomitant]
     Active Substance: EPIRUBICIN
     Indication: GASTRIC CANCER
     Dosage: 50 MG/MSQ ON DAY 1 OF THE CYCLE
     Route: 065
  4. OXALIPLATIN. [Concomitant]
     Active Substance: OXALIPLATIN
     Indication: GASTRIC CANCER
     Dosage: 130 MG/MSQ ON DAY OF THE CYCLE
     Route: 065

REACTIONS (8)
  - Drug interaction [Recovering/Resolving]
  - Agranulocytosis [Recovering/Resolving]
  - Toxicity to various agents [Recovering/Resolving]
  - Contraindicated drug administered [Unknown]
  - Palmar-plantar erythrodysaesthesia syndrome [Unknown]
  - Medication error [Unknown]
  - Stomatitis [Recovering/Resolving]
  - Bone marrow toxicity [Unknown]
